FAERS Safety Report 8815242 (Version 2)
Quarter: 2013Q1

REPORT INFORMATION
  Report Type: Spontaneous
  Country: US (occurrence: US)
  Receive Date: 20120928
  Receipt Date: 20130115
  Transmission Date: 20140127
  Serious: Yes (Other)
  Sender: FDA-Public Use
  Company Number: US-PERRIGO-12US008178

PATIENT
  Age: 62 Year
  Sex: Female
  Weight: 63.49 kg

DRUGS (2)
  1. LICE SHMPO LIQ 866 [Suspect]
     Indication: LICE INFESTATION
     Dosage: 1 APPLICATION, SINGLE
     Route: 061
     Dates: start: 20120916, end: 20120916
  2. AMBIEN [Concomitant]
     Indication: SLEEP DISORDER
     Dosage: UNK, UNK
     Route: 048

REACTIONS (6)
  - Corneal abrasion [Recovering/Resolving]
  - Eye irritation [Recovering/Resolving]
  - Accidental exposure to product [Recovered/Resolved]
  - Ocular hyperaemia [Recovering/Resolving]
  - Eye inflammation [Recovering/Resolving]
  - Eye pain [Recovering/Resolving]
